FAERS Safety Report 5236941-5 (Version None)
Quarter: 2007Q1

REPORT INFORMATION
  Report Type: 
  Country: None (occurrence: None)
  Receive Date: 20070213
  Receipt Date: 20070130
  Transmission Date: 20070707
  Serious: Yes (Other)
  Sender: FDA-Public Use
  Company Number: PHNU2007DE00733

PATIENT
  Sex: Male

DRUGS (2)
  1. CERTICAN [Suspect]
     Indication: HEART TRANSPLANT
     Dosage: 1 DF, QD
     Route: 048
     Dates: start: 20050101
  2. SANDIMMUNE [Suspect]
     Indication: HEART TRANSPLANT
     Dates: start: 20030701

REACTIONS (5)
  - ACCIDENT [None]
  - FEMORAL NECK FRACTURE [None]
  - HIP ARTHROPLASTY [None]
  - IMPAIRED HEALING [None]
  - OSTEONECROSIS [None]
